FAERS Safety Report 18280680 (Version 1)
Quarter: 2020Q3

REPORT INFORMATION
  Report Type: Spontaneous
  Country: CA (occurrence: CA)
  Receive Date: 20200918
  Receipt Date: 20200918
  Transmission Date: 20201103
  Serious: Yes (Other)
  Sender: FDA-Public Use
  Company Number: CA-PFIZER INC-2020225312

PATIENT
  Age: 14 Year
  Sex: Female

DRUGS (1)
  1. TOFACITINIB CITRATE [Suspect]
     Active Substance: TOFACITINIB CITRATE
     Indication: COLITIS ULCERATIVE
     Dosage: UNK
     Dates: start: 20200613

REACTIONS (5)
  - Product use issue [Unknown]
  - Off label use [Unknown]
  - Haematochezia [Unknown]
  - Therapeutic product effect incomplete [Unknown]
  - Pyrexia [Unknown]
